FAERS Safety Report 5257097-9 (Version None)
Quarter: 2007Q1

REPORT INFORMATION
  Report Type: 
  Country: None (occurrence: None)
  Receive Date: 20070307
  Receipt Date: 20070306
  Transmission Date: 20070707
  Serious: Yes (Hospitalization)
  Sender: FDA-Public Use
  Company Number: FR-BRISTOL-MYERS SQUIBB COMPANY-13539440

PATIENT
  Age: 37 Year
  Sex: Male
  Weight: 50 kg

DRUGS (6)
  1. AMIKLIN POWDER [Suspect]
     Indication: ATYPICAL MYCOBACTERIAL INFECTION
     Route: 042
     Dates: start: 20060415, end: 20060515
  2. CIPROFLOXACIN [Suspect]
     Indication: URINARY TRACT DISORDER
     Route: 048
     Dates: start: 20060228, end: 20060427
  3. ZECLAR [Suspect]
     Indication: ATYPICAL MYCOBACTERIAL INFECTION
     Route: 048
     Dates: start: 20060415
  4. PROGRAF [Suspect]
     Dates: start: 20051101
  5. CEFOXITIN [Concomitant]
     Indication: ATYPICAL MYCOBACTERIAL INFECTION
     Dates: start: 20060509
  6. TIGECYCLINE [Concomitant]
     Indication: ATYPICAL MYCOBACTERIAL INFECTION
     Dates: start: 20060519

REACTIONS (1)
  - RENAL FAILURE ACUTE [None]
